FAERS Safety Report 17635478 (Version 1)
Quarter: 2020Q2

REPORT INFORMATION
  Report Type: Spontaneous
  Country: CA (occurrence: CA)
  Receive Date: 20200407
  Receipt Date: 20200407
  Transmission Date: 20200713
  Serious: Yes (Hospitalization, Other)
  Sender: FDA-Public Use
  Company Number: CA-BRISTOL-MYERS SQUIBB COMPANY-BMS-2020-029062

PATIENT
  Age: 43 Year
  Sex: Male

DRUGS (3)
  1. IPILIMUMAB [Suspect]
     Active Substance: IPILIMUMAB
     Indication: METASTATIC MALIGNANT MELANOMA
     Route: 065
  2. NIVOLUMAB [Suspect]
     Active Substance: NIVOLUMAB
     Indication: METASTATIC MALIGNANT MELANOMA
     Route: 065
  3. METHYLPREDNISOLONE ACETATE. [Suspect]
     Active Substance: METHYLPREDNISOLONE ACETATE
     Indication: GASTROENTERITIS
     Dosage: 2 MILLIGRAM/KILOGRAM
     Route: 042

REACTIONS (4)
  - Immune-mediated arthritis [Recovered/Resolved]
  - Immune-mediated hepatitis [Recovered/Resolved]
  - Therapy non-responder [Recovered/Resolved]
  - Gastroenteritis [Recovered/Resolved]
